FAERS Safety Report 25961060 (Version 1)
Quarter: 2025Q4

REPORT INFORMATION
  Report Type: Spontaneous
  Country: EG (occurrence: EG)
  Receive Date: 20251027
  Receipt Date: 20251027
  Transmission Date: 20260118
  Serious: Yes (Life-Threatening, Hospitalization, Other)
  Sender: MICRO LABS LIMITED
  Company Number: EG-MICRO LABS LIMITED-ML2025-05491

PATIENT
  Age: 5 Year
  Sex: Male
  Weight: 18 kg

DRUGS (3)
  1. DEXAMETHASONE [Suspect]
     Active Substance: DEXAMETHASONE
     Indication: Asthma
     Dosage: DOSE OF 0.6 MG/KG INTRAMUSCULARLY.
     Route: 030
  2. ALBUTEROL [Concomitant]
     Active Substance: ALBUTEROL
     Indication: Asthma
     Dosage: NEBULIZED HIGH-DOSE, EVERY 15 MINUTES FOR THREE DOSES
     Route: 055
  3. IPRATROPIUM [Concomitant]
     Active Substance: IPRATROPIUM
     Indication: Asthma
     Dosage: NEBULIZED HIGH-DOSE, EVERY 15 MINUTES FOR THREE DOSES
     Route: 055

REACTIONS (1)
  - Anaphylactic shock [Recovered/Resolved]
